FAERS Safety Report 25038251 (Version 1)
Quarter: 2025Q1

REPORT INFORMATION
  Report Type: Spontaneous
  Country: US (occurrence: US)
  Receive Date: 20250304
  Receipt Date: 20250304
  Transmission Date: 20250408
  Serious: Yes (Other)
  Sender: PFIZER
  Company Number: US-PFIZER INC-202500046768

PATIENT
  Age: 67 Year
  Sex: Male

DRUGS (2)
  1. GENTAMICIN SULFATE [Suspect]
     Active Substance: GENTAMICIN SULFATE
  2. NEOMYCIN [Suspect]
     Active Substance: NEOMYCIN

REACTIONS (1)
  - Anaphylactic reaction [Unknown]
